APPROVED DRUG PRODUCT: CAVERJECT
Active Ingredient: ALPROSTADIL
Strength: 0.01MG/VIAL
Dosage Form/Route: INJECTABLE;INJECTION
Application: N020379 | Product #001 | TE Code: AP
Applicant: PFIZER INC
Approved: Jul 6, 1995 | RLD: Yes | RS: No | Type: RX